FAERS Safety Report 15494524 (Version 3)
Quarter: 2019Q1

REPORT INFORMATION
  Report Type: Spontaneous
  Country: US (occurrence: US)
  Receive Date: 20181012
  Receipt Date: 20190122
  Transmission Date: 20190417
  Serious: Yes (Hospitalization)
  Sender: FDA-Public Use
  Company Number: US-VERTEX PHARMACEUTICALS-2018-007231

PATIENT
  Sex: Female

DRUGS (7)
  1. VITAMIN D3 [Concomitant]
     Active Substance: CHOLECALCIFEROL
  2. DUONEB [Concomitant]
     Active Substance: ALBUTEROL SULFATE\IPRATROPIUM BROMIDE
  3. LEVALBUTEROL                       /01419301/ [Concomitant]
     Active Substance: LEVALBUTEROL
  4. PANTOPRAZOLE [Concomitant]
     Active Substance: PANTOPRAZOLE
  5. VENTOLIN HFA [Concomitant]
     Active Substance: ALBUTEROL SULFATE
  6. SYMDEKO [Suspect]
     Active Substance: IVACAFTOR\TEZACAFTOR
     Indication: CYSTIC FIBROSIS
     Dosage: 100MG TEZACAFTOR/150MG IVACAFTOR AM; 150MG IVACAFTOR PM
     Route: 048
     Dates: start: 201804
  7. URSODIOL. [Concomitant]
     Active Substance: URSODIOL

REACTIONS (2)
  - Hospitalisation [Not Recovered/Not Resolved]
  - Cystic fibrosis respiratory infection suppression [Not Recovered/Not Resolved]

NARRATIVE: CASE EVENT DATE: 2018
